FAERS Safety Report 6815161-4 (Version None)
Quarter: 2010Q3

REPORT INFORMATION
  Report Type: 
  Country: None (occurrence: None)
  Receive Date: 20100702
  Receipt Date: 20100628
  Transmission Date: 20110219
  Serious: Yes (Death, Hospitalization)
  Sender: FDA-Public Use
  Company Number: FR-SANOFI-AVENTIS-2010SA012042

PATIENT
  Age: 64 Year
  Sex: Female

DRUGS (7)
  1. ARAVA [Suspect]
     Indication: RHEUMATOID ARTHRITIS
     Route: 048
     Dates: start: 20090401, end: 20090415
  2. APRANAX [Suspect]
     Route: 048
     Dates: start: 20090312, end: 20090415
  3. CORTANCYL [Concomitant]
     Route: 048
     Dates: start: 20070101, end: 20100101
  4. METHOTREXATE [Concomitant]
     Route: 048
     Dates: start: 20080801, end: 20090301
  5. DI-ANTALVIC [Concomitant]
     Dates: end: 20100101
  6. MOPRAL [Concomitant]
     Route: 048
     Dates: start: 20090312, end: 20100101
  7. PRETERAX [Concomitant]
     Route: 048
     Dates: end: 20100101

REACTIONS (13)
  - COLITIS [None]
  - DIARRHOEA [None]
  - DRUG RASH WITH EOSINOPHILIA AND SYSTEMIC SYMPTOMS [None]
  - EOSINOPHIL COUNT INCREASED [None]
  - GASTROINTESTINAL HAEMORRHAGE [None]
  - HISTIOCYTOSIS HAEMATOPHAGIC [None]
  - LIVER INJURY [None]
  - LUNG INFECTION [None]
  - MULTI-ORGAN FAILURE [None]
  - NECROTISING OESOPHAGITIS [None]
  - RASH [None]
  - RENAL FAILURE [None]
  - TONSILLITIS [None]
